FAERS Safety Report 5132987-6 (Version None)
Quarter: 2006Q4

REPORT INFORMATION
  Report Type: 
  Country: None (occurrence: None)
  Receive Date: 20061018
  Receipt Date: 20061009
  Transmission Date: 20070319
  Serious: No
  Sender: FDA-Public Use
  Company Number: FR-SHR-03-007649

PATIENT
  Age: 46 Year
  Sex: Female
  Weight: 58 kg

DRUGS (1)
  1. MIRENA [Suspect]
     Indication: CONTRACEPTION
     Dosage: 20 UG/DAY, CONT, INTRA-UTERINE
     Route: 015
     Dates: start: 20021127, end: 20030314

REACTIONS (5)
  - FALLOPIAN TUBE CYST [None]
  - METRORRHAGIA [None]
  - PELVIC PAIN [None]
  - SALPINGITIS [None]
  - UTERINE LEIOMYOMA [None]
